FAERS Safety Report 26044801 (Version 1)
Quarter: 2025Q4

REPORT INFORMATION
  Report Type: Spontaneous
  Country: US (occurrence: US)
  Receive Date: 20251114
  Receipt Date: 20251114
  Transmission Date: 20260117
  Serious: No
  Sender: OPTINOSE INC
  Company Number: US-OptiNose US, Inc-2019OPT000869

PATIENT
  Sex: Female
  Weight: 77.095 kg

DRUGS (4)
  1. XHANCE [Suspect]
     Active Substance: FLUTICASONE PROPIONATE
     Indication: Sinus disorder
     Dosage: 186 MICROGRAM, BID
     Route: 045
     Dates: start: 2019
  2. DEVICE [Suspect]
     Active Substance: DEVICE
     Indication: Sinus disorder
     Dosage: UNK UNK
  3. BENADRYL [Concomitant]
     Active Substance: DIPHENHYDRAMINE HYDROCHLORIDE
     Indication: Hypersensitivity
     Dosage: UNK UNK , STARTED BEFORE XHANCE
     Route: 065
  4. ZYRTEC [Concomitant]
     Active Substance: CETIRIZINE HYDROCHLORIDE

REACTIONS (5)
  - Sinus headache [Unknown]
  - Sinus congestion [Unknown]
  - Product dose omission issue [Unknown]
  - Drug delivery system issue [Unknown]
  - Off label use [Unknown]
